FAERS Safety Report 9516572 (Version 1)
Quarter: 2013Q1

REPORT INFORMATION
  Report Type: Spontaneous
  Country: US (occurrence: None)
  Receive Date: 20130305
  Receipt Date: 20130305
  Transmission Date: 20140127
  Serious: Yes (Other)
  Sender: FDA-Public Use
  Company Number: 163-21880-12113827

PATIENT
  Age: 57 Year
  Sex: Female
  Weight: 84.37 kg

DRUGS (9)
  1. REVLIMID (LENALIDOMIDE) (CAPSULES) [Suspect]
     Indication: PLASMA CELL MYELOMA
     Dates: start: 20071012
  2. ACTONEL (RISEDRONATE SODIUM) [Concomitant]
  3. ACYCLOVIR (ACYCLOVIR) [Concomitant]
  4. AMITRIPTYLINE HCL (AMITRIPTYLINE HYDROCHLORIDE) [Concomitant]
  5. HYDROXYCHLOROQUINE (HYDROXYCHLOROQUINE) [Concomitant]
  6. IBUPROFEN (IBUPROFEN) [Concomitant]
  7. OMEPRAZOLE  (OMEPRAZOLE) [Concomitant]
  8. PRILOSEC [Concomitant]
  9. OXYCODONE (OXYCODONE) [Concomitant]

REACTIONS (1)
  - Deep vein thrombosis [None]
